FAERS Safety Report 4463777-5 (Version None)
Quarter: 2004Q3

REPORT INFORMATION
  Report Type: 
  Country: None (occurrence: None)
  Receive Date: 20040929
  Receipt Date: 20040920
  Transmission Date: 20050211
  Serious: No
  Sender: FDA-Public Use
  Company Number: 04H-062-0274121-00

PATIENT
  Age: 26 Year
  Sex: Female

DRUGS (1)
  1. METRONIDAZOLE [Suspect]
     Indication: SALPINGITIS
     Dosage: 1 GRAM/DAY, INTRAVENOUS
     Route: 042

REACTIONS (8)
  - ACUTE PSYCHOSIS [None]
  - DEPERSONALISATION [None]
  - DEREALISATION [None]
  - IRRITABILITY [None]
  - PERSECUTORY DELUSION [None]
  - PSYCHOMOTOR AGITATION [None]
  - THOUGHT BLOCKING [None]
  - THOUGHT INSERTION [None]
